FAERS Safety Report 4525057-9 (Version None)
Quarter: 2004Q4

REPORT INFORMATION
  Report Type: 
  Country: None (occurrence: None)
  Receive Date: 20041117
  Receipt Date: 20031110
  Transmission Date: 20050328
  Serious: Yes (Other)
  Sender: FDA-Public Use
  Company Number: C2003-2982.01

PATIENT
  Age: 39 Year
  Sex: Female

DRUGS (7)
  1. CLOZAPINE [Suspect]
     Indication: SCHIZOAFFECTIVE DISORDER
     Dosage: 600MG QD, ORAL
     Route: 048
     Dates: start: 20030701, end: 20030704
  2. RISPERIDONE [Concomitant]
  3. GLIMEPIRIDE [Concomitant]
  4. METFORMIN HCL [Concomitant]
  5. PIOGLITAZONE HCL [Concomitant]
  6. OXYBUTYNIN CHLORIDE [Concomitant]
  7. PAROXETINE [Concomitant]

REACTIONS (3)
  - DYSPNOEA [None]
  - NAUSEA [None]
  - PARAESTHESIA [None]
